FAERS Safety Report 20440820 (Version 2)
Quarter: 2022Q1

REPORT INFORMATION
  Report Type: Spontaneous
  Country: IT (occurrence: IT)
  Receive Date: 20220207
  Receipt Date: 20220216
  Transmission Date: 20220423
  Serious: Yes (Other)
  Sender: FDA-Public Use
  Company Number: None

PATIENT
  Age: 59 Year
  Sex: Female
  Weight: 85 kg

DRUGS (2)
  1. TRASTUZUMAB [Suspect]
     Active Substance: TRASTUZUMAB
     Indication: Breast neoplasm
     Dosage: 440 MILLIGRAM, CYCLICAL
     Route: 041
     Dates: start: 20220103, end: 20220103
  2. PERJETA [Concomitant]
     Active Substance: PERTUZUMAB
     Indication: Breast neoplasm
     Dosage: 840 MILLIGRAM
     Route: 042
     Dates: start: 20220103, end: 20220103

REACTIONS (4)
  - Seizure [Recovered/Resolved]
  - Tremor [Recovered/Resolved]
  - Chills [Recovered/Resolved]
  - Off label use [Unknown]

NARRATIVE: CASE EVENT DATE: 20220103
